FAERS Safety Report 19708438 (Version 1)
Quarter: 2021Q3

REPORT INFORMATION
  Report Type: Spontaneous
  Country: US (occurrence: US)
  Receive Date: 20210817
  Receipt Date: 20210817
  Transmission Date: 20211014
  Serious: Yes (Other)
  Sender: FDA-Public Use
  Company Number: US-PFIZER INC-202101004671

PATIENT
  Age: 43 Year
  Sex: Male
  Weight: 77.11 kg

DRUGS (1)
  1. XELJANZ [Suspect]
     Active Substance: TOFACITINIB CITRATE
     Indication: PSORIATIC ARTHROPATHY
     Dosage: 5 MG

REACTIONS (3)
  - Off label use [Unknown]
  - Crohn^s disease [Unknown]
  - Drug effective for unapproved indication [Unknown]
